FAERS Safety Report 16543683 (Version 1)
Quarter: 2019Q3

REPORT INFORMATION
  Report Type: Spontaneous
  Country: CZ (occurrence: CZ)
  Receive Date: 20190709
  Receipt Date: 20190709
  Transmission Date: 20191004
  Serious: Yes (Other)
  Sender: FDA-Public Use
  Company Number: CZ-BIOGEN-2019BI00759858

PATIENT
  Age: 36 Year
  Sex: Female

DRUGS (4)
  1. AVONEX [Suspect]
     Active Substance: INTERFERON BETA-1A
     Indication: MULTIPLE SCLEROSIS
     Route: 065
     Dates: start: 20160729, end: 20190429
  2. VIGANTOL [Concomitant]
     Indication: VITAMIN SUPPLEMENTATION
     Dosage: 15 DROPS THREE TIMES WEEKLY
     Route: 065
  3. MAVENCLAD [Suspect]
     Active Substance: CLADRIBINE
     Indication: MULTIPLE SCLEROSIS
     Dosage: FIRST WEEK THERAPY AT A DOSAGE OF ONE 10MG TABLET PER DAY FOR 4 CONSECUTIVE DAYS
     Route: 048
     Dates: start: 20190408, end: 20190411
  4. PREGABALIN. [Concomitant]
     Active Substance: PREGABALIN
     Indication: PRODUCT USED FOR UNKNOWN INDICATION
     Route: 065

REACTIONS (4)
  - Gamma-glutamyltransferase increased [Not Recovered/Not Resolved]
  - Aspartate aminotransferase increased [Not Recovered/Not Resolved]
  - Hepatitis A antibody positive [Unknown]
  - Alanine aminotransferase increased [Not Recovered/Not Resolved]
